FAERS Safety Report 9416968 (Version 1)
Quarter: 2013Q3

REPORT INFORMATION
  Report Type: Spontaneous
  Country: JP (occurrence: JP)
  Receive Date: 20130719
  Receipt Date: 20130719
  Transmission Date: 20140515
  Serious: Yes (Hospitalization)
  Sender: FDA-Public Use
  Company Number: DSJ-2013-15909

PATIENT
  Age: 81 Year
  Sex: Female

DRUGS (1)
  1. OLMETEC [Suspect]
     Indication: PRODUCT USED FOR UNKNOWN INDICATION

REACTIONS (8)
  - Hypertensive encephalopathy [None]
  - Dehydration [None]
  - Oedema [None]
  - Fall [None]
  - Contusion [None]
  - Eating disorder symptom [None]
  - Hypokalaemia [None]
  - Hypoproteinaemia [None]
